FAERS Safety Report 6507156-5 (Version None)
Quarter: 2009Q4

REPORT INFORMATION
  Report Type: 
  Country: None (occurrence: None)
  Receive Date: 20091127
  Receipt Date: 20090518
  Transmission Date: 20100525
  Serious: No
  Sender: FDA-Public Use
  Company Number: US200905004190

PATIENT
  Age: 63 Year
  Sex: Female
  Weight: 99.8 kg

DRUGS (6)
  1. BYETTA [Suspect]
     Indication: TYPE 2 DIABETES MELLITUS
     Dosage: 5 UG, 2/D,  10 UG, 2/D
     Dates: start: 20080101, end: 20080101
  2. BYETTA [Suspect]
     Indication: TYPE 2 DIABETES MELLITUS
     Dosage: 5 UG, 2/D,  10 UG, 2/D
     Dates: start: 20080101
  3. GLYBURIDE AND METFORMIN HCL [Concomitant]
  4. METFORMIN HCL [Concomitant]
  5. PRECOSE [Concomitant]
  6. CRESTOR [Concomitant]

REACTIONS (4)
  - BLOOD GLUCOSE DECREASED [None]
  - BLOOD GLUCOSE INCREASED [None]
  - DISORIENTATION [None]
  - FATIGUE [None]
